FAERS Safety Report 17595977 (Version 5)
Quarter: 2020Q3

REPORT INFORMATION
  Report Type: Report from Study
  Country: None (occurrence: US)
  Receive Date: 20200329
  Receipt Date: 20200907
  Transmission Date: 20201102
  Serious: Yes (Other)
  Sender: FDA-Public Use
  Company Number: US-ABBVIE-19K-163-2886916-00

PATIENT
  Age: 62 Year
  Sex: Male

DRUGS (1)
  1. HUMIRA [Suspect]
     Active Substance: ADALIMUMAB
     Indication: RHEUMATOID ARTHRITIS
     Route: 058
     Dates: start: 20190624

REACTIONS (24)
  - Gait disturbance [Recovering/Resolving]
  - Impaired self-care [Recovering/Resolving]
  - Depression [Unknown]
  - Neuropathy peripheral [Unknown]
  - Arthralgia [Recovering/Resolving]
  - Joint stiffness [Not Recovered/Not Resolved]
  - Neuralgia [Unknown]
  - Musculoskeletal stiffness [Recovering/Resolving]
  - Drug ineffective [Unknown]
  - Anxiety [Unknown]
  - Mobility decreased [Unknown]
  - Pain [Recovering/Resolving]
  - Discomfort [Unknown]
  - Injection site haemorrhage [Recovered/Resolved]
  - Neck pain [Recovered/Resolved]
  - Peripheral swelling [Not Recovered/Not Resolved]
  - Back pain [Not Recovered/Not Resolved]
  - Joint lock [Not Recovered/Not Resolved]
  - Mobility decreased [Unknown]
  - Arthralgia [Recovered/Resolved]
  - Hypoaesthesia [Unknown]
  - Insomnia [Recovering/Resolving]
  - Spinal operation [Unknown]
  - Loss of personal independence in daily activities [Recovering/Resolving]

NARRATIVE: CASE EVENT DATE: 2019
